FAERS Safety Report 25215224 (Version 1)
Quarter: 2025Q2

REPORT INFORMATION
  Report Type: Spontaneous
  Country: IT (occurrence: IT)
  Receive Date: 20250418
  Receipt Date: 20250418
  Transmission Date: 20250717
  Serious: Yes (Other)
  Sender: AMGEN
  Company Number: IT-AMGEN-ITASP2025073712

PATIENT
  Age: 74 Year
  Sex: Male

DRUGS (3)
  1. REPATHA [Suspect]
     Active Substance: EVOLOCUMAB
     Indication: Product used for unknown indication
     Dosage: UNK, Q2WK
     Route: 065
  2. REPATHA [Suspect]
     Active Substance: EVOLOCUMAB
  3. ARANESP [Suspect]
     Active Substance: DARBEPOETIN ALFA
     Indication: Product used for unknown indication
     Dosage: UNK, QWK
     Route: 065

REACTIONS (5)
  - Budd-Chiari syndrome [Unknown]
  - Hepatic cirrhosis [Unknown]
  - Renal failure [Unknown]
  - Cerebrovascular accident [Unknown]
  - Ammonia increased [Unknown]
